FAERS Safety Report 9515333 (Version 1)
Quarter: 2013Q3

REPORT INFORMATION
  Report Type: Report from Study
  Country: US (occurrence: US)
  Receive Date: 20130911
  Receipt Date: 20130911
  Transmission Date: 20140515
  Serious: Yes (Death)
  Sender: FDA-Public Use
  Company Number: US-ABBOTT-13P-163-1145065-00

PATIENT
  Sex: Male

DRUGS (1)
  1. LUPRON DEPOT [Suspect]
     Indication: PROSTATE CANCER
     Dosage: ADMINISTERED BY PHYSICIAN
     Dates: start: 20080723

REACTIONS (1)
  - Death [Fatal]
